FAERS Safety Report 9935009 (Version 1)
Quarter: 2014Q1

REPORT INFORMATION
  Report Type: Spontaneous
  Country: CZ (occurrence: CZ)
  Receive Date: 20140228
  Receipt Date: 20140228
  Transmission Date: 20141002
  Serious: Yes (Death, Other)
  Sender: FDA-Public Use
  Company Number: PHHY2014CZ024207

PATIENT
  Age: 70 Year
  Sex: Female

DRUGS (4)
  1. EVEROLIMUS [Suspect]
     Indication: NEUROENDOCRINE CARCINOMA OF THE SKIN
     Dosage: 10 MG
  2. CISPLATIN [Suspect]
     Indication: NEUROENDOCRINE CARCINOMA OF THE SKIN
  3. ETOPOSIDE [Suspect]
     Indication: NEUROENDOCRINE CARCINOMA OF THE SKIN
  4. LANREOTIDE [Suspect]
     Indication: NEUROENDOCRINE CARCINOMA OF THE SKIN
     Dosage: 120 MG, AT INTERVALS OF TWO WEEKS
     Route: 030

REACTIONS (4)
  - Death [Fatal]
  - Neuroendocrine carcinoma of the skin [Unknown]
  - Malignant neoplasm progression [Unknown]
  - Pancytopenia [Unknown]
